FAERS Safety Report 5711744-3 (Version None)
Quarter: 2008Q2

REPORT INFORMATION
  Report Type: 
  Country: None (occurrence: None)
  Receive Date: 20080421
  Receipt Date: 20080409
  Transmission Date: 20081010
  Serious: Yes (Other)
  Sender: FDA-Public Use
  Company Number: PHHO2008DE04272

PATIENT
  Age: 42 Year
  Sex: Male
  Weight: 102 kg

DRUGS (3)
  1. ALISKIREN [Suspect]
     Indication: ESSENTIAL HYPERTENSION
     Dosage: 300 MG, QD
     Route: 048
     Dates: start: 20080222, end: 20080320
  2. COMPARATOR AMLODIPINE [Suspect]
     Indication: ESSENTIAL HYPERTENSION
     Dates: start: 20080323
  3. ALISKIREN VS AMLODIPINE [Suspect]
     Indication: ESSENTIAL HYPERTENSION
     Dosage: NO TREATMENT
     Dates: start: 20080208

REACTIONS (4)
  - POST PROCEDURAL HAEMORRHAGE [None]
  - POST PROCEDURAL SWELLING [None]
  - PROCEDURAL COMPLICATION [None]
  - PROCEDURAL PAIN [None]
